FAERS Safety Report 4652994-7 (Version None)
Quarter: 2005Q2

REPORT INFORMATION
  Report Type: 
  Country: None (occurrence: None)
  Receive Date: 20050503
  Receipt Date: 20050425
  Transmission Date: 20051028
  Serious: Yes (Hospitalization)
  Sender: FDA-Public Use
  Company Number: 231609K05USA

PATIENT
  Age: 39 Year
  Sex: Female

DRUGS (3)
  1. REBIF [Suspect]
     Indication: MULTIPLE SCLEROSIS
     Dosage: 44 MCG, 3 IN 1 WEEKS, SUBCUTANEOUS
     Route: 058
     Dates: start: 20031107, end: 20050421
  2. SOLU-MEDROL [Suspect]
     Dosage: 1 G, 1 IN 1 DAYS
  3. PREDNISONE [Suspect]

REACTIONS (10)
  - CONDITION AGGRAVATED [None]
  - DRUG INEFFECTIVE [None]
  - EUPHORIC MOOD [None]
  - INSOMNIA [None]
  - MANIA [None]
  - MULTIPLE SCLEROSIS [None]
  - NERVOUS SYSTEM DISORDER [None]
  - OVERDOSE [None]
  - PSYCHOTIC DISORDER [None]
  - SPINAL DISORDER [None]
